FAERS Safety Report 7122777-7 (Version None)
Quarter: 2010Q4

REPORT INFORMATION
  Report Type: 
  Country: None (occurrence: None)
  Receive Date: 20101124
  Receipt Date: 20101110
  Transmission Date: 20110411
  Serious: Yes (Other)
  Sender: FDA-Public Use
  Company Number: GB-BAUSCH-2010BL006404

PATIENT
  Age: 47 Year
  Sex: Male

DRUGS (7)
  1. PREDNISOLONE [Suspect]
     Indication: RENAL TRANSPLANT
  2. CYCLOSPORINE [Suspect]
     Indication: RENAL TRANSPLANT
  3. COTRIMOXAZOLE [Suspect]
     Indication: PROPHYLAXIS
  4. METHYLPREDNISOLONE [Suspect]
     Indication: RENAL TRANSPLANT
     Dates: start: 20030101
  5. METHYLPREDNISOLONE [Suspect]
     Dates: start: 20060101
  6. MYCOPHENOLATE MOFETIL [Suspect]
     Indication: RENAL TRANSPLANT
     Dates: start: 20060101
  7. TACROLIMUS [Suspect]
     Indication: RENAL TRANSPLANT
     Dates: start: 20060101

REACTIONS (7)
  - EYE INFECTION TOXOPLASMAL [None]
  - IRIDOCYCLITIS [None]
  - RETINITIS [None]
  - TOXOPLASMOSIS [None]
  - TRANSPLANT REJECTION [None]
  - VISUAL FIELD DEFECT [None]
  - VITRITIS [None]
